FAERS Safety Report 25131880 (Version 2)
Quarter: 2025Q2

REPORT INFORMATION
  Report Type: Report from Study
  Country: US (occurrence: US)
  Receive Date: 20250327
  Receipt Date: 20250402
  Transmission Date: 20250716
  Serious: Yes (Other)
  Sender: ABBVIE
  Company Number: US-ABBVIE-6193126

PATIENT
  Sex: Female

DRUGS (1)
  1. HUMIRA [Suspect]
     Active Substance: ADALIMUMAB
     Indication: Ankylosing spondylitis
     Route: 058
     Dates: start: 20241211

REACTIONS (4)
  - Sinonasal obstruction [Recovering/Resolving]
  - Cognitive disorder [Not Recovered/Not Resolved]
  - Ankylosing spondylitis [Recovering/Resolving]
  - Autoimmune disorder [Unknown]
